FAERS Safety Report 24939137 (Version 1)
Quarter: 2025Q1

REPORT INFORMATION
  Report Type: Spontaneous
  Country: FR (occurrence: FR)
  Receive Date: 20250206
  Receipt Date: 20250206
  Transmission Date: 20250408
  Serious: Yes (Other)
  Sender: PFIZER
  Company Number: None

PATIENT
  Age: 60 Year
  Sex: Male

DRUGS (4)
  1. PIPERACILLIN SODIUM\TAZOBACTAM SODIUM [Suspect]
     Active Substance: PIPERACILLIN SODIUM\TAZOBACTAM SODIUM
     Indication: Skin infection
     Dosage: 12 G, 1X/DAY
     Route: 042
     Dates: start: 20240731, end: 20240828
  2. VORICONAZOLE [Suspect]
     Active Substance: VORICONAZOLE
     Indication: Skin infection
     Dosage: 700 MG, 1X/DAY
     Route: 048
     Dates: start: 20240731, end: 20240827
  3. TEICOPLANIN [Suspect]
     Active Substance: TEICOPLANIN
     Indication: Skin infection
     Dosage: 800 MG, 1X/DAY
     Route: 042
     Dates: start: 20240819, end: 20240827
  4. OMNIPAQUE [Suspect]
     Active Substance: IOHEXOL
     Indication: Computerised tomogram
     Route: 042
     Dates: start: 20240827, end: 20240827

REACTIONS (2)
  - Toxic skin eruption [Recovered/Resolved]
  - Off label use [Unknown]

NARRATIVE: CASE EVENT DATE: 20240731
